FAERS Safety Report 4834554-8 (Version None)
Quarter: 2005Q4

REPORT INFORMATION
  Report Type: 
  Country: None (occurrence: None)
  Receive Date: 20051122
  Receipt Date: 20050308
  Transmission Date: 20060501
  Serious: No
  Sender: FDA-Public Use
  Company Number: US-BRISTOL-MYERS SQUIBB COMPANY-12890323

PATIENT
  Age: 45 Year
  Sex: Female

DRUGS (3)
  1. PRAVACHOL [Suspect]
     Indication: BLOOD CHOLESTEROL INCREASED
     Route: 048
     Dates: start: 20041101, end: 20050302
  2. ATENOLOL [Concomitant]
     Dates: start: 19970101
  3. TEMAZEPAM [Concomitant]
     Dosage: DURATION OF THERAPY A ^LITTLE OVER ONE YEAR^

REACTIONS (2)
  - HEADACHE [None]
  - INFLUENZA LIKE ILLNESS [None]
